FAERS Safety Report 4345275-2 (Version None)
Quarter: 2004Q2

REPORT INFORMATION
  Report Type: 
  Country: None (occurrence: None)
  Receive Date: 20040420
  Receipt Date: 20040408
  Transmission Date: 20050107
  Serious: Yes (Other)
  Sender: FDA-Public Use
  Company Number: 2003122948

PATIENT
  Sex: Male

DRUGS (1)
  1. NARDIL [Suspect]
     Indication: ILL-DEFINED DISORDER

REACTIONS (3)
  - DRUG WITHDRAWAL SYNDROME [None]
  - LETHARGY [None]
  - PHARMACEUTICAL PRODUCT COMPLAINT [None]
